FAERS Safety Report 5234945-X (Version None)
Quarter: 2007Q1

REPORT INFORMATION
  Report Type: 
  Country: None (occurrence: None)
  Receive Date: 20070209
  Receipt Date: 20070202
  Transmission Date: 20070707
  Serious: Yes (Death, Life-Threatening)
  Sender: FDA-Public Use
  Company Number: GB-PFIZER INC-2007009749

PATIENT
  Sex: Female

DRUGS (2)
  1. SULFASALAZINE [Suspect]
  2. METHOTREXATE [Suspect]

REACTIONS (1)
  - INTERSTITIAL LUNG DISEASE [None]
